FAERS Safety Report 13190561 (Version 1)
Quarter: 2017Q1

REPORT INFORMATION
  Report Type: Spontaneous
  Country: FR (occurrence: FR)
  Receive Date: 20170206
  Receipt Date: 20170206
  Transmission Date: 20170428
  Serious: Yes (Hospitalization, Other)
  Sender: FDA-Public Use
  Company Number: FR-PFIZER INC-2017041583

PATIENT
  Age: 35 Year
  Sex: Female

DRUGS (16)
  1. UPTRAVI [Suspect]
     Active Substance: SELEXIPAG
     Dosage: 1200 UG, 2X/DAY
     Route: 048
     Dates: start: 20160623
  2. UPTRAVI [Suspect]
     Active Substance: SELEXIPAG
     Dosage: 1200 UG, 2X/DAY
     Route: 048
     Dates: start: 20160708
  3. UPTRAVI [Suspect]
     Active Substance: SELEXIPAG
     Dosage: 1000 UG, 2X/DAY
     Route: 048
     Dates: start: 20160805
  4. UPTRAVI [Suspect]
     Active Substance: SELEXIPAG
     Dosage: 1200 UNK, UNK
     Route: 048
  5. TRACLEER [Suspect]
     Active Substance: BOSENTAN
     Indication: PULMONARY ARTERIAL HYPERTENSION
     Dosage: 125 MG, 2X/DAY
     Route: 048
     Dates: start: 201207
  6. MYFORTIC [Concomitant]
     Active Substance: MYCOPHENOLATE SODIUM
  7. MIANSERIN [Concomitant]
     Active Substance: MIANSERIN
  8. DAFALGAN [Concomitant]
     Active Substance: ACETAMINOPHEN
     Dosage: UNK, ONCE OR TWICE DAILY
  9. VALIUM [Concomitant]
     Active Substance: DIAZEPAM
  10. REVATIO [Suspect]
     Active Substance: SILDENAFIL CITRATE
     Indication: PULMONARY ARTERIAL HYPERTENSION
     Dosage: 20 MG, 3X/DAY
     Route: 048
     Dates: start: 201310
  11. DIFFU K [Concomitant]
     Active Substance: POTASSIUM CHLORIDE
  12. UPTRAVI [Suspect]
     Active Substance: SELEXIPAG
     Indication: PULMONARY ARTERIAL HYPERTENSION
     Dosage: 200 UG, 2X/DAY
     Route: 048
     Dates: start: 20160518
  13. UPTRAVI [Suspect]
     Active Substance: SELEXIPAG
     Dosage: 800 UG, 2X/DAY
     Dates: start: 20160608
  14. UPTRAVI [Suspect]
     Active Substance: SELEXIPAG
     Dosage: 1400 UG, 1X/DAY
     Route: 048
     Dates: start: 20160707
  15. PREDNISONE. [Concomitant]
     Active Substance: PREDNISONE
  16. UPTRAVI [Suspect]
     Active Substance: SELEXIPAG
     Dosage: 600 UG, 1X/DAY
     Route: 048
     Dates: start: 20160630

REACTIONS (16)
  - Fall [Recovered/Resolved]
  - Headache [Unknown]
  - Back pain [Unknown]
  - Fatigue [Not Recovered/Not Resolved]
  - Dyspnoea [Unknown]
  - Asthenia [Recovering/Resolving]
  - Malaise [Recovering/Resolving]
  - Syncope [Recovered/Resolved]
  - Myalgia [Recovering/Resolving]
  - Dizziness [Recovering/Resolving]
  - Nausea [Unknown]
  - Pain in jaw [Unknown]
  - Pain [Unknown]
  - Diarrhoea [Recovering/Resolving]
  - Jaw fracture [Recovering/Resolving]
  - Cardiac failure [Unknown]

NARRATIVE: CASE EVENT DATE: 20160518
